FAERS Safety Report 6046127-2 (Version None)
Quarter: 2009Q1

REPORT INFORMATION
  Report Type: 
  Country: None (occurrence: None)
  Receive Date: 20090121
  Receipt Date: 20090121
  Transmission Date: 20090719
  Serious: Yes (Hospitalization)
  Sender: FDA-Public Use
  Company Number: None

PATIENT
  Sex: Female
  Weight: 75.8 kg

DRUGS (14)
  1. CYCLOPHOSPHAMIDE [Suspect]
     Dosage: 1335 MG
  2. DOXIL [Suspect]
     Dosage: 71 MG
  3. NEULASTA [Suspect]
     Dosage: 6 MG
  4. PREDNISONE [Suspect]
     Dosage: 210 MG
  5. RITUXIMAB (MOAB C2B8 ANTI CD20, CHIMERIC) [Suspect]
     Dosage: 668 MG
  6. VINCRISTINE SULFATE [Suspect]
     Dosage: 2 MG
  7. AMLODIPINE [Concomitant]
  8. CLONIDINE HCL [Concomitant]
  9. LANTUS [Concomitant]
  10. LISINOPRIL [Concomitant]
  11. LOVASTATIN [Concomitant]
  12. METFORMIN HCL [Concomitant]
  13. METOPROLOL [Concomitant]
  14. SYNTHROID [Concomitant]

REACTIONS (13)
  - ATRIAL FIBRILLATION [None]
  - BLOOD GLUCOSE INCREASED [None]
  - CARDIO-RESPIRATORY ARREST [None]
  - CHEST PAIN [None]
  - CONFUSIONAL STATE [None]
  - HAEMATEMESIS [None]
  - HALLUCINATION [None]
  - LOSS OF CONSCIOUSNESS [None]
  - NAUSEA [None]
  - PULMONARY OEDEMA [None]
  - SYNCOPE [None]
  - TACHYCARDIA [None]
  - UPPER GASTROINTESTINAL HAEMORRHAGE [None]
